FAERS Safety Report 9807470 (Version 3)
Quarter: 2014Q1

REPORT INFORMATION
  Report Type: Report from Study
  Country: AU (occurrence: AU)
  Receive Date: 20140110
  Receipt Date: 20140320
  Transmission Date: 20141002
  Serious: Yes (Other)
  Sender: FDA-Public Use
  Company Number: AU-ROCHE-1329463

PATIENT
  Age: 42 Year
  Sex: Female
  Weight: 90 kg

DRUGS (14)
  1. ACTEMRA [Suspect]
     Indication: RHEUMATOID ARTHRITIS
     Route: 042
     Dates: start: 20131206, end: 20140109
  2. ACTEMRA [Suspect]
     Route: 042
     Dates: start: 20131206, end: 20140109
  3. CARBAMAZEPINE CR [Concomitant]
     Indication: BIPOLAR DISORDER
     Route: 065
  4. FORADIL [Concomitant]
     Indication: ASTHMA
     Route: 050
  5. DUROGESIC [Concomitant]
     Indication: PAIN
     Dosage: DOSE 75 MCG/HR
     Route: 065
  6. AMITRIPTYLIN. HYDROCHLORID. [Concomitant]
     Indication: PAIN
     Dosage: AT NIGHT
     Route: 065
  7. AMITRIPTYLIN. HYDROCHLORID. [Concomitant]
     Route: 065
     Dates: start: 20120809
  8. DIAZEPAM [Concomitant]
     Indication: BIPOLAR DISORDER
     Dosage: AT NIGHT
     Route: 065
  9. CHOLECALCIFEROL [Concomitant]
     Indication: VITAMIN D DEFICIENCY
     Dosage: EQUIVALENT VIT D3 1000 IU = 25 MCG
     Route: 065
     Dates: start: 20120809
  10. MELOXICAM [Concomitant]
     Indication: RHEUMATOID ARTHRITIS
     Dosage: WITH FOOD
     Route: 065
     Dates: start: 20120809
  11. METHOTREXATE [Concomitant]
     Indication: RHEUMATOID ARTHRITIS
     Route: 058
     Dates: start: 20130321
  12. CALCIUM FOLINATE [Concomitant]
     Indication: RHEUMATOID ARTHRITIS
     Dosage: 8-12 HOURS AFTER METHOTREXATE DOSE
     Route: 065
  13. PERICYAZINE [Concomitant]
     Indication: BIPOLAR DISORDER
     Dosage: AT NIGHT
     Route: 065
     Dates: start: 20130321
  14. PREGABALIN [Concomitant]
     Indication: PAIN
     Route: 065
     Dates: start: 20130626

REACTIONS (5)
  - Abdominal pain [Unknown]
  - Diverticulitis [Unknown]
  - Gastric ulcer [Unknown]
  - Umbilical hernia [Unknown]
  - Overdose [Unknown]
